FAERS Safety Report 19413972 (Version 1)
Quarter: 2021Q2

REPORT INFORMATION
  Report Type: Spontaneous
  Country: US (occurrence: US)
  Receive Date: 20210615
  Receipt Date: 20210615
  Transmission Date: 20210717
  Serious: Yes (Other)
  Sender: FDA-Public Use
  Company Number: US-ROCHE-1424983

PATIENT
  Sex: Female

DRUGS (12)
  1. CLONAZEPAM. [Suspect]
     Active Substance: CLONAZEPAM
     Indication: PRODUCT USED FOR UNKNOWN INDICATION
     Dosage: ONE TABLET AT NIGHT
     Route: 065
  2. CELEXA [Concomitant]
     Active Substance: CITALOPRAM HYDROBROMIDE
     Route: 048
  3. SINGULAIR [Concomitant]
     Active Substance: MONTELUKAST SODIUM
     Dosage: 1 TAB PO QAM
     Route: 048
  4. LAMICTAL [Concomitant]
     Active Substance: LAMOTRIGINE
     Route: 048
  5. FLONASE [Concomitant]
     Active Substance: FLUTICASONE PROPIONATE
     Dosage: 50 MCG/1 ACTUATION, 1?2 SPRAYS
     Route: 045
  6. CYCLOSPORINE. [Suspect]
     Active Substance: CYCLOSPORINE
     Indication: PRODUCT USED FOR UNKNOWN INDICATION
     Route: 048
  7. FLOVENT HFA [Concomitant]
     Active Substance: FLUTICASONE PROPIONATE
     Dosage: 2 PUFFS DAILY, 220 MCG/1 ACTUATION
     Route: 048
  8. ACCOLATE [Concomitant]
     Active Substance: ZAFIRLUKAST
  9. PREDNISONE. [Concomitant]
     Active Substance: PREDNISONE
     Route: 048
  10. ALBUTEROL HFA [Concomitant]
     Active Substance: ALBUTEROL SULFATE
     Dosage: 1?2 PUFFS EVERY 4 TO 6 HOURS PRN, 90 MCG/1ACTUATION, ORAL INHALATION
     Route: 048
  11. OXYCODONE HYDROCHLORIDE. [Concomitant]
     Active Substance: OXYCODONE HYDROCHLORIDE
     Route: 048
  12. ASMANEX [Concomitant]
     Active Substance: MOMETASONE FUROATE
     Dosage: ASMANEX TWISTHALER, INHALATION POWDER, 2 PUFOFS
     Route: 055

REACTIONS (7)
  - Eye pruritus [Unknown]
  - Lacrimation increased [Unknown]
  - Asthma [Unknown]
  - Pain in extremity [Unknown]
  - Arthralgia [Unknown]
  - Pruritus [Unknown]
  - Angioedema [Unknown]
